FAERS Safety Report 12230929 (Version 2)
Quarter: 2016Q2

REPORT INFORMATION
  Report Type: Report from Study
  Country: JP (occurrence: JP)
  Receive Date: 20160401
  Receipt Date: 20160422
  Transmission Date: 20160815
  Serious: Yes (Life-Threatening, Other)
  Sender: FDA-Public Use
  Company Number: JP-BRISTOL-MYERS SQUIBB COMPANY-BMS-2015-003203

PATIENT
  Age: 80 Year
  Sex: Female
  Weight: 45 kg

DRUGS (8)
  1. APIXABAN [Suspect]
     Active Substance: APIXABAN
     Indication: THROMBOSIS PROPHYLAXIS
     Dosage: 2.5 MG, BID
     Route: 048
     Dates: start: 20140228, end: 20160128
  2. CEROCRAL [Concomitant]
     Active Substance: IFENPRODIL
     Indication: DIZZINESS
     Route: 065
  3. DIART [Concomitant]
     Active Substance: AZOSEMIDE
     Indication: CARDIAC FAILURE
     Route: 065
  4. TAKEPRON [Concomitant]
     Active Substance: LANSOPRAZOLE
     Indication: GASTROOESOPHAGEAL REFLUX DISEASE
     Dosage: UNK
     Route: 065
     Dates: start: 20150417
  5. SPIRONOLACTONE. [Concomitant]
     Active Substance: SPIRONOLACTONE
     Indication: CARDIAC FAILURE
     Route: 065
  6. CONIEL [Concomitant]
     Active Substance: BENIDIPINE HYDROCHLORIDE
     Indication: HYPERTENSION
     Route: 065
  7. GASTROM [Concomitant]
     Active Substance: ECABET
     Indication: GASTRITIS
     Route: 065
  8. BLOPRESS [Concomitant]
     Active Substance: CANDESARTAN CILEXETIL
     Indication: HYPERTENSION
     Route: 065

REACTIONS (2)
  - Gastric cancer [Unknown]
  - Dysgeusia [Unknown]

NARRATIVE: CASE EVENT DATE: 20140522
